FAERS Safety Report 15504302 (Version 1)
Quarter: 2018Q4

REPORT INFORMATION
  Report Type: Spontaneous
  Country: GB (occurrence: GB)
  Receive Date: 20181016
  Receipt Date: 20181016
  Transmission Date: 20190205
  Serious: Yes (Other)
  Sender: FDA-Public Use
  Company Number: GB-TEVA-2018-GB-963931

PATIENT
  Age: 79 Year
  Sex: Female

DRUGS (1)
  1. CO-CARELDOPA [Suspect]
     Active Substance: CARBIDOPA\LEVODOPA
     Indication: PARKINSON^S DISEASE
     Dosage: 25/100MG
     Dates: start: 201807

REACTIONS (4)
  - Hirsutism [Unknown]
  - Hair colour changes [Unknown]
  - Swollen tongue [Unknown]
  - Inflammation [Unknown]
